FAERS Safety Report 24358765 (Version 1)
Quarter: 2024Q3

REPORT INFORMATION
  Report Type: Spontaneous
  Country: US (occurrence: None)
  Receive Date: 20240923
  Receipt Date: 20240923
  Transmission Date: 20241016
  Serious: Yes (Life-Threatening)
  Sender: Public
  Company Number: None

PATIENT
  Age: 77 Year
  Sex: Female
  Weight: 52.7 kg

DRUGS (1)
  1. LEXISCAN [Suspect]
     Active Substance: REGADENOSON
     Dates: start: 20240913, end: 20240913

REACTIONS (5)
  - Atrial fibrillation [None]
  - Infusion related reaction [None]
  - Cardiac arrest [None]
  - Loss of consciousness [None]
  - Cardiac procedure complication [None]

NARRATIVE: CASE EVENT DATE: 20240920
